FAERS Safety Report 4381823-4 (Version None)
Quarter: 2004Q2

REPORT INFORMATION
  Report Type: 
  Country: None (occurrence: None)
  Receive Date: 20040603
  Receipt Date: 20030724
  Transmission Date: 20050107
  Serious: Yes (Hospitalization)
  Sender: FDA-Public Use
  Company Number: 200316210US

PATIENT
  Age: 48 Year
  Sex: Male
  Weight: 90.9 kg

DRUGS (4)
  1. LOVENOX [Suspect]
     Indication: DEEP VEIN THROMBOSIS
     Dosage: 90 MG Q12H SC
     Route: 058
     Dates: start: 20030621, end: 20030624
  2. WARFARIN SODIUM [Concomitant]
  3. PREDNISONE [Concomitant]
  4. VERAPAMIL [Concomitant]

REACTIONS (2)
  - CHEST PAIN [None]
  - PULMONARY EMBOLISM [None]
